FAERS Safety Report 8759742 (Version 1)
Quarter: 2012Q4

REPORT INFORMATION
  Report Type: 
  Country: FR (occurrence: FR)
  Receive Date: 20120829
  Receipt Date: 20120829
  Transmission Date: 20130627
  Serious: Yes (Hospitalization)
  Sender: FDA-Public Use
  Company Number: FR-ROCHE-1104700

PATIENT
  Age: 32 Year
  Sex: Male

DRUGS (2)
  1. ROACCUTANE [Suspect]
     Indication: PRODUCT USED FOR UNKNOWN INDICATION
     Route: 048
     Dates: start: 20120405, end: 20120717
  2. ROACCUTANE [Suspect]
     Indication: ACNE

REACTIONS (3)
  - Depression [Recovering/Resolving]
  - Headache [Recovering/Resolving]
  - Dissociative disorder [Recovering/Resolving]
